FAERS Safety Report 21414672 (Version 2)
Quarter: 2024Q1

REPORT INFORMATION
  Report Type: Report from Study
  Country: US (occurrence: US)
  Receive Date: 20221006
  Receipt Date: 20240201
  Transmission Date: 20240409
  Serious: Yes (Hospitalization, Other)
  Sender: FDA-Public Use
  Company Number: US-TAKEDA-2022TUS046995

PATIENT
  Sex: Female

DRUGS (3)
  1. LANADELUMAB [Suspect]
     Active Substance: LANADELUMAB
     Indication: Hereditary angioedema
     Dosage: UNK
     Route: 065
  2. LANADELUMAB [Suspect]
     Active Substance: LANADELUMAB
     Dosage: UNK UNK, Q2WEEKS
     Route: 058
  3. LANADELUMAB [Suspect]
     Active Substance: LANADELUMAB
     Dosage: UNK
     Route: 058
     Dates: start: 2018

REACTIONS (6)
  - Skin laceration [Recovering/Resolving]
  - Haemorrhage [Recovering/Resolving]
  - Nerve injury [Recovering/Resolving]
  - Menopausal symptoms [Unknown]
  - Road traffic accident [Unknown]
  - Hereditary angioedema [Recovered/Resolved]
